FAERS Safety Report 12905773 (Version 1)
Quarter: 2016Q4

REPORT INFORMATION
  Report Type: Report from Study
  Country: US (occurrence: US)
  Receive Date: 20161103
  Receipt Date: 20161103
  Transmission Date: 20170207
  Serious: Yes (Other)
  Sender: FDA-Public Use
  Company Number: US-ACCORD-045290

PATIENT
  Age: 5 Decade
  Sex: Male

DRUGS (1)
  1. SIMVASTATIN. [Suspect]
     Active Substance: SIMVASTATIN
     Indication: TYPE IIA HYPERLIPIDAEMIA
     Dosage: VARYING DOSES (40 MG-1 MG)/DAY

REACTIONS (6)
  - Confusional state [Unknown]
  - Irritability [Recovering/Resolving]
  - Mood altered [Unknown]
  - Impatience [Unknown]
  - Personality change [Unknown]
  - Aggression [Recovering/Resolving]
